FAERS Safety Report 18242683 (Version 1)
Quarter: 2020Q3

REPORT INFORMATION
  Report Type: Spontaneous
  Country: NL (occurrence: FR)
  Receive Date: 20200908
  Receipt Date: 20200908
  Transmission Date: 20201103
  Serious: Yes (Hospitalization)
  Sender: FDA-Public Use
  Company Number: FR-FRESENIUS KABI-FK202008994

PATIENT
  Age: 60 Year
  Sex: Male
  Weight: 129 kg

DRUGS (2)
  1. LINEZOLID KABI [Suspect]
     Active Substance: LINEZOLID
     Indication: SOFT TISSUE INFECTION
     Dosage: 2 DF/DAY
     Route: 042
     Dates: start: 20200426, end: 20200427
  2. PIPERACILLIN SODIUM/TAZOBACTAM SODIUM [Suspect]
     Active Substance: PIPERACILLIN SODIUM\TAZOBACTAM SODIUM
     Indication: SOFT TISSUE INFECTION
     Route: 042
     Dates: start: 20200423, end: 20200427

REACTIONS (1)
  - Agranulocytosis [Recovered/Resolved]

NARRATIVE: CASE EVENT DATE: 20200427
